FAERS Safety Report 6502111-3 (Version None)
Quarter: 2009Q4

REPORT INFORMATION
  Report Type: 
  Country: None (occurrence: None)
  Receive Date: 20091214
  Receipt Date: 20091201
  Transmission Date: 20100525
  Serious: Yes (Other)
  Sender: FDA-Public Use
  Company Number: 310001L09ESP

PATIENT
  Age: 42 Year
  Sex: Female

DRUGS (4)
  1. GONAL-F [Suspect]
     Indication: ASSISTED FERTILISATION
     Dosage: 2250 IU
  2. LUVERIS [Suspect]
     Indication: ASSISTED FERTILISATION
     Dosage: 750 IU
  3. CETROTIDE [Suspect]
     Indication: ASSISTED FERTILISATION
  4. OVITRELLE (CHORIOGONADOTROPIN ALFA) [Suspect]
     Indication: ASSISTED FERTILISATION

REACTIONS (4)
  - CAESAREAN SECTION [None]
  - DRUG EXPOSURE DURING PREGNANCY [None]
  - PREMATURE LABOUR [None]
  - TWIN PREGNANCY [None]
